FAERS Safety Report 19502114 (Version 2)
Quarter: 2021Q3

REPORT INFORMATION
  Report Type: Spontaneous
  Country: IR (occurrence: IR)
  Receive Date: 20210707
  Receipt Date: 20210708
  Transmission Date: 20211014
  Serious: Yes (Other)
  Sender: FDA-Public Use
  Company Number: IR-ACCORD-230298

PATIENT
  Age: 31 Year
  Sex: Female

DRUGS (5)
  1. LEVOTHYROXINE. [Suspect]
     Active Substance: LEVOTHYROXINE
     Indication: HYPOTHYROIDISM
  2. PREDNISOLONE. [Concomitant]
     Active Substance: PREDNISOLONE
     Indication: HENOCH-SCHONLEIN PURPURA
  3. THIAMAZOLE [Concomitant]
     Active Substance: METHIMAZOLE
     Indication: HYPERTHYROIDISM
  4. PREDNISOLONE. [Concomitant]
     Active Substance: PREDNISOLONE
     Indication: HENOCH-SCHONLEIN PURPURA
  5. COLCHICINE. [Concomitant]
     Active Substance: COLCHICINE
     Indication: HENOCH-SCHONLEIN PURPURA

REACTIONS (4)
  - Overdose [Unknown]
  - Henoch-Schonlein purpura [Recovered/Resolved]
  - Vasculitis [Recovered/Resolved]
  - Hyperthyroidism [Recovered/Resolved]
